FAERS Safety Report 16215973 (Version 1)
Quarter: 2019Q2

REPORT INFORMATION
  Report Type: Spontaneous
  Country: US (occurrence: US)
  Receive Date: 20190314
  Receipt Date: 20190314
  Transmission Date: 20190711
  Serious: Yes (Hospitalization)
  Sender: FDA-Public Use
  Company Number: None

PATIENT
  Age: 81 Year
  Sex: Male

DRUGS (1)
  1. REVLIMID [Suspect]
     Active Substance: LENALIDOMIDE
     Indication: PLASMA CELL MYELOMA
     Route: 048
     Dates: start: 201812

REACTIONS (7)
  - Therapy cessation [None]
  - Rash generalised [None]
  - Rash morbilliform [None]
  - Rash [None]
  - Hypertension [None]
  - Rash pruritic [None]
  - Purpura [None]

NARRATIVE: CASE EVENT DATE: 20190221
